FAERS Safety Report 8256041-X (Version None)
Quarter: 2012Q1

REPORT INFORMATION
  Report Type: 
  Country: None (occurrence: None)
  Receive Date: 20120330
  Receipt Date: 20120321
  Transmission Date: 20120608
  Serious: Yes (Death, Hospitalization)
  Sender: FDA-Public Use
  Company Number: AUR-APL-2012-01595

PATIENT
  Age: 83 Year
  Sex: Female

DRUGS (6)
  1. STEROID [Concomitant]
  2. SALINE (SALINE /01783401/) [Suspect]
     Indication: PRODUCT USED FOR UNKNOWN INDICATION
     Dosage: (40 ML), UNKNOWN
  3. ENALAPRIL MALEATE [Concomitant]
  4. IODINE-BASED RADIOGRAPHIC CONTRAST MEDIUM (IODINE) [Suspect]
     Indication: ANGIOGRAM
     Dosage: (75 ML), UNKNOWN
  5. METFORMIN HCL [Suspect]
     Indication: TYPE 2 DIABETES MELLITUS
     Dosage: 1000 MG (500 MG, 2 IN 1 D), UNKNOWN
  6. TICLOPIDINE HYDROCHLORIDE [Concomitant]

REACTIONS (12)
  - RESPIRATORY DISTRESS [None]
  - ATELECTASIS [None]
  - BLOOD CREATININE INCREASED [None]
  - BLOOD GLUCOSE INCREASED [None]
  - FIBRIN D DIMER INCREASED [None]
  - BRONCHOSTENOSIS [None]
  - BLOOD LACTIC ACID INCREASED [None]
  - PYREXIA [None]
  - ATRIAL FIBRILLATION [None]
  - HYPOXIA [None]
  - GLOMERULAR FILTRATION RATE DECREASED [None]
  - METABOLIC ACIDOSIS [None]
